FAERS Safety Report 8556684-X (Version None)
Quarter: 2012Q3

REPORT INFORMATION
  Report Type: 
  Country: None (occurrence: None)
  Receive Date: 20120801
  Receipt Date: 20120719
  Transmission Date: 20120928
  Serious: Yes (Death)
  Sender: FDA-Public Use
  Company Number: US-ASTELLAS-2012US006443

PATIENT
  Age: 56 Year
  Sex: Male

DRUGS (8)
  1. MEROPENEM [Concomitant]
     Indication: NEUTROPENIA
     Dosage: UNK
     Route: 065
  2. MEROPENEM [Concomitant]
     Indication: PYREXIA
  3. VANCOMYCIN [Concomitant]
     Indication: NEUTROPENIA
     Dosage: UNK
     Route: 065
  4. CLOFARABINE [Concomitant]
     Indication: CHEMOTHERAPY
     Dosage: UNK
     Route: 065
  5. VORICONAZOLE [Concomitant]
     Indication: PYREXIA
  6. AMBISOME [Suspect]
     Indication: ZYGOMYCOSIS
     Dosage: UNK
     Route: 065
  7. VANCOMYCIN [Concomitant]
     Indication: PYREXIA
  8. VORICONAZOLE [Concomitant]
     Indication: NEUTROPENIA
     Dosage: UNK
     Route: 065

REACTIONS (1)
  - DRUG INEFFECTIVE [None]
